FAERS Safety Report 10245037 (Version 2)
Quarter: 2014Q3

REPORT INFORMATION
  Report Type: Spontaneous
  Country: US (occurrence: US)
  Receive Date: 20140618
  Receipt Date: 20140912
  Transmission Date: 20150326
  Serious: No
  Sender: FDA-Public Use
  Company Number: US-GALDERMA-US14001865

PATIENT
  Age: 56 Year
  Sex: Female
  Weight: 54.43 kg

DRUGS (7)
  1. ERY-TAB (ERYTHROMYCIN) 333 MG [Concomitant]
     Indication: ROSACEA
     Dosage: 333 MG
     Route: 048
     Dates: start: 2006
  2. CERAVE NIGHT LOTION [Concomitant]
     Route: 061
  3. MIRVASO [Suspect]
     Active Substance: BRIMONIDINE TARTRATE
     Dosage: 0.33%
     Route: 061
     Dates: start: 20140418, end: 20140420
  4. METROGEL [Concomitant]
     Active Substance: METRONIDAZOLE
     Indication: ROSACEA
     Dosage: 1%
     Route: 061
     Dates: start: 2006
  5. CERAVE DAY LOTION SPF 30 [Concomitant]
     Route: 061
  6. MIRVASO [Suspect]
     Active Substance: BRIMONIDINE TARTRATE
     Indication: ROSACEA
     Dosage: 0.33%
     Route: 061
     Dates: start: 20140505, end: 20140508
  7. CETAPHIL [Concomitant]
     Active Substance: AVOBENZONE\OCTOCRYLENE\TRICLOSAN
     Indication: THERAPEUTIC SKIN CARE TOPICAL
     Route: 061

REACTIONS (7)
  - Acne [Recovered/Resolved]
  - Erythema [Recovered/Resolved]
  - Drug ineffective for unapproved indication [Recovered/Resolved]
  - Sunburn [Recovered/Resolved]
  - Condition aggravated [Recovered/Resolved]
  - Rash erythematous [Recovered/Resolved]
  - Off label use [Recovered/Resolved]

NARRATIVE: CASE EVENT DATE: 201404
